FAERS Safety Report 6210313-9 (Version None)
Quarter: 2009Q2

REPORT INFORMATION
  Report Type: 
  Country: None (occurrence: None)
  Receive Date: 20090601
  Receipt Date: 20090522
  Transmission Date: 20091009
  Serious: Yes (Other)
  Sender: FDA-Public Use
  Company Number: US-ABBOTT-09P-163-0575421-00

PATIENT
  Sex: Female

DRUGS (14)
  1. HUMIRA [Suspect]
     Indication: PSORIASIS
     Route: 058
     Dates: start: 20080501, end: 20090101
  2. HUMIRA [Suspect]
     Indication: RHEUMATOID ARTHRITIS
     Route: 058
     Dates: start: 20090401
  3. FORTEO [Concomitant]
     Indication: OSTEOPOROSIS
     Dosage: VERIFIED DOSE AS DAILY
     Route: 050
  4. PLAQUENIL [Concomitant]
     Indication: PSORIASIS
     Route: 048
  5. PLAQUENIL [Concomitant]
     Indication: RHEUMATOID ARTHRITIS
  6. AVAPRO [Concomitant]
     Indication: BLOOD PRESSURE
     Route: 048
  7. SYNTHROID [Concomitant]
     Indication: BASEDOW'S DISEASE
     Route: 048
  8. TOPROL-XL [Concomitant]
     Indication: CARDIAC DISORDER
     Dosage: 1/2 TAB DAILY
     Route: 048
  9. NEXIUM [Concomitant]
     Indication: GASTROOESOPHAGEAL REFLUX DISEASE
     Route: 048
  10. LIPITOR [Concomitant]
     Indication: BLOOD CHOLESTEROL
     Route: 048
  11. CENTRUM SILVER [Concomitant]
     Indication: VITAMIN SUPPLEMENTATION
     Route: 048
  12. CITRACAL [Concomitant]
     Indication: MINERAL SUPPLEMENTATION
     Route: 048
  13. OSTEO BI-FLEX [Concomitant]
     Indication: ARTHROPATHY
     Route: 048
  14. LASIX [Concomitant]
     Indication: DIURETIC THERAPY
     Route: 048

REACTIONS (1)
  - ADNEXA UTERI MASS [None]
